FAERS Safety Report 9210381 (Version 1)
Quarter: 2013Q2

REPORT INFORMATION
  Report Type: Spontaneous
  Country: IN (occurrence: IN)
  Receive Date: 20130404
  Receipt Date: 20130404
  Transmission Date: 20140414
  Serious: Yes (Hospitalization, Other)
  Sender: FDA-Public Use
  Company Number: IN-ROCHE-1209786

PATIENT
  Sex: Female

DRUGS (2)
  1. BEVACIZUMAB [Suspect]
     Indication: RETINOPATHY OF PREMATURITY
     Route: 031
  2. BEVACIZUMAB [Suspect]
     Route: 031

REACTIONS (6)
  - Retinopathy of prematurity [Unknown]
  - Acute respiratory distress syndrome [Unknown]
  - Ascites [Unknown]
  - Pleural effusion [Unknown]
  - Retinal haemorrhage [Unknown]
  - Anaphylactic shock [Unknown]
